FAERS Safety Report 6367963-9 (Version None)
Quarter: 2009Q3

REPORT INFORMATION
  Report Type: 
  Country: None (occurrence: None)
  Receive Date: 20090922
  Receipt Date: 20090917
  Transmission Date: 20100115
  Serious: Yes (Hospitalization)
  Sender: FDA-Public Use
  Company Number: DE-WYE-G04453809

PATIENT
  Sex: Female
  Weight: 70 kg

DRUGS (2)
  1. VENLAFAXINE HCL [Suspect]
     Dosage: 1 CAPSULE/TABLET (OVERDOSE AMOUNT 37.5MG)
     Route: 048
     Dates: start: 20090825, end: 20090825
  2. MELPERONE [Suspect]
     Dosage: 6 TABLETS (OVERDOSE AMOUNT 150MG)
     Route: 048
     Dates: start: 20090825, end: 20090825

REACTIONS (6)
  - AGGRESSION [None]
  - INTENTIONAL OVERDOSE [None]
  - RESTLESSNESS [None]
  - SUICIDE ATTEMPT [None]
  - TACHYCARDIA [None]
  - VERTIGO [None]
